FAERS Safety Report 4416262-0 (Version None)
Quarter: 2004Q3

REPORT INFORMATION
  Report Type: 
  Country: None (occurrence: None)
  Receive Date: 20040803
  Receipt Date: 20040726
  Transmission Date: 20050211
  Serious: Yes (Hospitalization)
  Sender: FDA-Public Use
  Company Number: 2004223905US

PATIENT
  Age: 62 Year
  Sex: Female
  Weight: 53.5 kg

DRUGS (4)
  1. CAMPTOSAR [Suspect]
     Indication: CARCINOMA
     Dosage: 100 MG, WEEKLY, IV
     Route: 042
     Dates: start: 20040628, end: 20040706
  2. CISPLATIN [Suspect]
     Indication: CARCINOMA
     Dosage: 46 MG, WEEKLY, IV
     Route: 042
     Dates: start: 20040628, end: 20040710
  3. IMODIUM [Concomitant]
  4. FENTANYL [Concomitant]

REACTIONS (6)
  - BLOOD CREATININE INCREASED [None]
  - BLOOD PRESSURE DECREASED [None]
  - BLOOD UREA INCREASED [None]
  - DEHYDRATION [None]
  - DIARRHOEA [None]
  - VOMITING [None]
